FAERS Safety Report 6486672-9 (Version None)
Quarter: 2009Q4

REPORT INFORMATION
  Report Type: 
  Country: None (occurrence: None)
  Receive Date: 20091210
  Receipt Date: 20091203
  Transmission Date: 20100525
  Serious: Yes (Disabling)
  Sender: FDA-Public Use
  Company Number: JP-ROCHE-669935

PATIENT
  Sex: Male
  Weight: 64 kg

DRUGS (8)
  1. TAMIFLU [Suspect]
     Indication: INFLUENZA
     Route: 048
     Dates: start: 20091105, end: 20091105
  2. TAMIFLU [Suspect]
     Route: 048
     Dates: start: 20091106, end: 20091108
  3. LOXONIN [Suspect]
     Indication: INFLUENZA
     Dosage: ONE-TWICE/DAY.
     Route: 048
     Dates: start: 20091105, end: 20091106
  4. MUCOSTA [Concomitant]
     Route: 048
     Dates: start: 20091107
  5. ZYLORIC [Concomitant]
     Route: 048
     Dates: start: 20091107
  6. GASTER [Concomitant]
     Dosage: DRUG REPORTED AS GASTER D.
     Route: 048
     Dates: start: 20091107
  7. GASMOTIN [Concomitant]
     Dosage: DRUG REPORTED AS MOSAPRIDE CITRATE.
     Route: 048
  8. MAGNESIUM OXIDE [Concomitant]
     Dosage: DRUG NAME REPORTED AS: JU-KAMA (MAGNESIUM OXIDE).
     Route: 048
     Dates: start: 20091107

REACTIONS (2)
  - ABNORMAL BEHAVIOUR [None]
  - ENCEPHALOPATHY [None]
